FAERS Safety Report 15635455 (Version 2)
Quarter: 2018Q4

REPORT INFORMATION
  Report Type: Report from Study
  Country: IT (occurrence: IT)
  Receive Date: 20181120
  Receipt Date: 20181120
  Transmission Date: 20190205
  Serious: Yes (Other)
  Sender: FDA-Public Use
  Company Number: IT-TEVA-2018-IT-976283

PATIENT
  Age: 77 Year
  Sex: Female

DRUGS (7)
  1. DIBASE 10.000 U.I./ML GOCCE ORALI, SOLUZIONE [Concomitant]
     Active Substance: CHOLECALCIFEROL
     Dosage: STRENGTH:10000 IU/ML
  2. BLOPRESS 16 MG COMPRESSE [Concomitant]
     Active Substance: CANDESARTAN CILEXETIL
  3. LEVOFLOXACIN. [Suspect]
     Active Substance: LEVOFLOXACIN
     Indication: PNEUMONIA BACTERIAL
     Dosage: 500 ML
     Route: 042
     Dates: start: 20181005, end: 20181005
  4. ACETYLSALICYLIC ACID [Concomitant]
     Active Substance: ASPIRIN
  5. ALENDRONATO ACTAVIS 70 MG COMPRESSE [Concomitant]
  6. PRISMA 24 MG CAPSULE RIGIDE [Concomitant]
  7. MONURIL 3 G GRANULATO PER SOLUZIONE ORALE [Concomitant]

REACTIONS (1)
  - Infusion site erythema [Recovered/Resolved]

NARRATIVE: CASE EVENT DATE: 20181005
